FAERS Safety Report 6255374-6 (Version None)
Quarter: 2009Q3

REPORT INFORMATION
  Report Type: 
  Country: None (occurrence: None)
  Receive Date: 20090702
  Receipt Date: 20090624
  Transmission Date: 20100115
  Serious: Yes (Hospitalization)
  Sender: FDA-Public Use
  Company Number: US-AMGEN-QUU350009

PATIENT
  Sex: Female
  Weight: 44.4 kg

DRUGS (3)
  1. NEULASTA [Suspect]
     Indication: CHEMOTHERAPY
     Route: 065
  2. ARANESP [Suspect]
     Indication: ANAEMIA OF MALIGNANT DISEASE
  3. UNSPECIFIED ANTINEOPLASTIC AGENT [Concomitant]

REACTIONS (2)
  - DECUBITUS ULCER [None]
  - SEPSIS [None]
